FAERS Safety Report 25018041 (Version 2)
Quarter: 2025Q1

REPORT INFORMATION
  Report Type: Spontaneous
  Country: US (occurrence: US)
  Receive Date: 20250227
  Receipt Date: 20250305
  Transmission Date: 20250408
  Serious: No
  Sender: ABBVIE
  Company Number: US-ABBVIE-6150421

PATIENT

DRUGS (1)
  1. REFRESH TEARS PF [Suspect]
     Active Substance: CARBOXYMETHYLCELLULOSE SODIUM\GLYCERIN
     Indication: Dry eye
     Route: 047

REACTIONS (5)
  - Discomfort [Unknown]
  - Eye irritation [Unknown]
  - Product odour abnormal [Unknown]
  - Suspected product contamination [Unknown]
  - Eye infection [Unknown]
